FAERS Safety Report 9630200 (Version 1)
Quarter: 2013Q4

REPORT INFORMATION
  Report Type: Spontaneous
  Country: US (occurrence: US)
  Receive Date: 20131017
  Receipt Date: 20131017
  Transmission Date: 20140711
  Serious: Yes (Death)
  Sender: FDA-Public Use
  Company Number: CHPA2013US015797

PATIENT
  Sex: Female

DRUGS (2)
  1. MAALOX ANTACID/ANTIGAS MAX LIQ UNKNOWN [Suspect]
     Indication: ULCER
     Dosage: UNK, UNK
     Route: 048
  2. MAALOX ANTACID/ANTIGAS MAX LIQ UNKNOWN [Suspect]
     Indication: OFF LABEL USE

REACTIONS (1)
  - Cardiac disorder [Fatal]
